FAERS Safety Report 4450532-5 (Version None)
Quarter: 2004Q3

REPORT INFORMATION
  Report Type: 
  Country: None (occurrence: None)
  Receive Date: 20040914
  Receipt Date: 20040830
  Transmission Date: 20050211
  Serious: Yes (Hospitalization, Disabling)
  Sender: FDA-Public Use
  Company Number: 2004-BP-06926BP

PATIENT
  Age: 42 Year
  Sex: Female

DRUGS (6)
  1. CATAPRES [Suspect]
     Dosage: 0.2 MG (5 MG), TO
     Dates: start: 20040810, end: 20040816
  2. ACTIQ [Concomitant]
  3. TOPAMAX [Concomitant]
  4. SOMA [Concomitant]
  5. LIDODERM (LIDOCAINE) [Concomitant]
  6. NEXIUM [Concomitant]

REACTIONS (9)
  - CONVERSION DISORDER [None]
  - DIZZINESS [None]
  - FALL [None]
  - GASTROOESOPHAGEAL REFLUX DISEASE [None]
  - HAEMORRHAGE [None]
  - HEAD INJURY [None]
  - PAIN IN EXTREMITY [None]
  - PARALYSIS FLACCID [None]
  - SOMNOLENCE [None]
